FAERS Safety Report 7520626-6 (Version None)
Quarter: 2011Q2

REPORT INFORMATION
  Report Type: 
  Country: None (occurrence: None)
  Receive Date: 20110603
  Receipt Date: 20110527
  Transmission Date: 20111010
  Serious: Yes (Hospitalization)
  Sender: FDA-Public Use
  Company Number: US-BIOGENIDEC-2011BI017148

PATIENT
  Age: 68 Year
  Sex: Female

DRUGS (2)
  1. STEROIDS NOS [Concomitant]
     Indication: MULTIPLE SCLEROSIS
     Route: 048
  2. AVONEX [Suspect]
     Indication: MULTIPLE SCLEROSIS
     Route: 030
     Dates: start: 20021122

REACTIONS (3)
  - PYREXIA [None]
  - ABDOMINAL DISTENSION [None]
  - DEHYDRATION [None]
